FAERS Safety Report 13840760 (Version 2)
Quarter: 2017Q3

REPORT INFORMATION
  Report Type: Spontaneous
  Country: DE (occurrence: DE)
  Receive Date: 20170807
  Receipt Date: 20170815
  Transmission Date: 20171127
  Serious: Yes (Hospitalization)
  Sender: FDA-Public Use
  Company Number: DE-PFIZER INC-2017331667

PATIENT

DRUGS (1)
  1. INLYTA [Suspect]
     Active Substance: AXITINIB
     Dosage: 5 MG, 2X

REACTIONS (4)
  - Blood creatine phosphokinase increased [Unknown]
  - Dermatomyositis [Unknown]
  - Weight decreased [Unknown]
  - Blood pressure increased [Unknown]
